FAERS Safety Report 10276134 (Version 1)
Quarter: 2014Q3

REPORT INFORMATION
  Report Type: Spontaneous
  Country: US (occurrence: US)
  Receive Date: 20140703
  Receipt Date: 20140703
  Transmission Date: 20150326
  Serious: No
  Sender: FDA-Public Use
  Company Number: US-ASTRAZENECA-2014SE46411

PATIENT
  Age: 47 Year
  Sex: Male

DRUGS (2)
  1. ARIMIDEX [Suspect]
     Active Substance: ANASTROZOLE
     Indication: BLOOD TESTOSTERONE DECREASED
     Dosage: UNKNOWN WEEK
     Route: 048
  2. ARIMIDEX [Suspect]
     Active Substance: ANASTROZOLE
     Indication: BLOOD OESTROGEN INCREASED
     Dosage: UNKNOWN WEEK
     Route: 048

REACTIONS (3)
  - Skin disorder [Unknown]
  - Drug prescribing error [Unknown]
  - Off label use [Unknown]
